FAERS Safety Report 24208928 (Version 4)
Quarter: 2024Q4

REPORT INFORMATION
  Report Type: Spontaneous
  Country: US (occurrence: US)
  Receive Date: 20240814
  Receipt Date: 20241210
  Transmission Date: 20250115
  Serious: No
  Sender: PFIZER
  Company Number: US-PFIZER INC-202400232626

PATIENT
  Age: 13 Year
  Sex: Female
  Weight: 33.11 kg

DRUGS (2)
  1. GENOTROPIN [Suspect]
     Active Substance: SOMATROPIN
     Indication: Growth hormone deficiency
     Dosage: 1.2MG ADMINISTERED EVERY DAY. ALTERNATES GIVING IN ARMS, LEGS, AND BUTT CHEEKS
     Dates: start: 2023
  2. PERIACTIN [Concomitant]
     Active Substance: CYPROHEPTADINE HYDROCHLORIDE
     Indication: Appetite disorder
     Dosage: 5MG SYRUP EVERY NIGHT BY MOUTH
     Route: 048

REACTIONS (6)
  - Drug dose omission by device [Unknown]
  - Device malfunction [Unknown]
  - Device information output issue [Unknown]
  - Injection site pain [Unknown]
  - Injection site hyperaesthesia [Unknown]
  - Injection site bruising [Unknown]

NARRATIVE: CASE EVENT DATE: 20240806
